FAERS Safety Report 7713685-9 (Version None)
Quarter: 2011Q3

REPORT INFORMATION
  Report Type: 
  Country: None (occurrence: None)
  Receive Date: 20110823
  Receipt Date: 20110808
  Transmission Date: 20111222
  Serious: Yes (Death, Hospitalization, Other)
  Sender: FDA-Public Use
  Company Number: 20110537

PATIENT
  Age: 45 Year
  Sex: Male
  Weight: 99.7913 kg

DRUGS (11)
  1. SODIUM CHLORIDE [Suspect]
     Indication: MEDICATION DILUTION
     Dosage: 100 TO 250 CC
     Route: 042
     Dates: start: 20110131, end: 20110408
  2. DEXAMETHASONE [Suspect]
     Indication: VOMITING
     Dosage: 2 TAB TWICE DAILY
     Route: 048
     Dates: start: 20110321, end: 20110325
  3. DEXAMETHASONE SODIUM PHOSPHATE [Suspect]
     Indication: NAUSEA
     Dosage: 10 MG D 1-5 X3 CYCL, D
     Route: 042
     Dates: start: 20110131, end: 20110406
  4. DEXAMETHASONE SODIUM PHOSPHATE [Suspect]
     Indication: VOMITING
     Dosage: 10 MG D 1-5 X3 CYCL, D
     Route: 042
     Dates: start: 20110131, end: 20110406
  5. DEXAMETHASONE SODIUM PHOSPHATE [Suspect]
     Indication: PROPHYLAXIS
     Dosage: 10 MG D 1-5 X3 CYCL, D
     Route: 042
     Dates: start: 20110131, end: 20110406
  6. ETOPOSIDE [Suspect]
     Indication: SEMINOMA
     Dosage: 230 MG DAY 1-5 X4
  7. ZOFRAN [Concomitant]
  8. CISPLATIN [Suspect]
     Indication: SEMINOMA
     Dosage: 45 MG D 1-5 X3; 35 MG
     Dates: start: 20110131, end: 20110408
  9. ALOXI [Concomitant]
  10. EMEND [Concomitant]
  11. MANNITOL [Concomitant]

REACTIONS (33)
  - PAIN IN EXTREMITY [None]
  - LEFT VENTRICULAR HYPERTROPHY [None]
  - ABDOMINAL PAIN [None]
  - DEHYDRATION [None]
  - NEUTROPENIA [None]
  - LACTIC ACIDOSIS [None]
  - UNRESPONSIVE TO STIMULI [None]
  - APNOEA [None]
  - PULMONARY OEDEMA [None]
  - NAUSEA [None]
  - VOMITING [None]
  - MENTAL STATUS CHANGES [None]
  - DRUG INEFFECTIVE [None]
  - WHITE BLOOD CELL COUNT DECREASED [None]
  - MUSCLE SPASMS [None]
  - ANAEMIA [None]
  - HYPERGLYCAEMIA [None]
  - HEPATOMEGALY [None]
  - FATIGUE [None]
  - HYPERTENSIVE HEART DISEASE [None]
  - CARDIOMEGALY [None]
  - HEPATIC PAIN [None]
  - FALL [None]
  - TINEA PEDIS [None]
  - PULMONARY EMBOLISM [None]
  - PRODUCT QUALITY ISSUE [None]
  - DECREASED APPETITE [None]
  - PULSE ABSENT [None]
  - PULMONARY CONGESTION [None]
  - DEEP VEIN THROMBOSIS [None]
  - TINNITUS [None]
  - LOSS OF CONSCIOUSNESS [None]
  - DILATATION VENTRICULAR [None]
